FAERS Safety Report 6918996-2 (Version None)
Quarter: 2010Q3

REPORT INFORMATION
  Report Type: 
  Country: None (occurrence: None)
  Receive Date: 20100811
  Receipt Date: 20100728
  Transmission Date: 20110219
  Serious: Yes (Death, Congenital Anomaly, Other)
  Sender: FDA-Public Use
  Company Number: BE-ELI_LILLY_AND_COMPANY-BE201005007372

PATIENT
  Weight: 2.91 kg

DRUGS (2)
  1. CYMBALTA [Suspect]
     Indication: DEPRESSION
     Dosage: 60 MG, DAILY (1/D)
     Route: 064
     Dates: start: 20090501
  2. OMNIBIONTA [Concomitant]
     Dosage: UNK, DAILY (1/D)

REACTIONS (3)
  - BRAIN NEOPLASM [None]
  - DRUG EXPOSURE DURING PREGNANCY [None]
  - MACROCEPHALY [None]
